FAERS Safety Report 6591989-3 (Version None)
Quarter: 2010Q1

REPORT INFORMATION
  Report Type: 
  Country: None (occurrence: None)
  Receive Date: 20100221
  Receipt Date: 20090824
  Transmission Date: 20100710
  Serious: Yes (Other)
  Sender: FDA-Public Use
  Company Number: US-ALLERGAN-0911723US

PATIENT
  Age: 52 Year
  Sex: Female

DRUGS (2)
  1. BOTOX [Suspect]
     Indication: IMPAIRED GASTRIC EMPTYING
     Dosage: UNK
     Route: 030
     Dates: start: 20090807, end: 20090807
  2. PRILOSEC [Concomitant]

REACTIONS (4)
  - DYSARTHRIA [None]
  - DYSPHAGIA [None]
  - GAIT DISTURBANCE [None]
  - WEIGHT DECREASED [None]
